FAERS Safety Report 12075097 (Version 1)
Quarter: 2016Q1

REPORT INFORMATION
  Report Type: Spontaneous
  Country: US (occurrence: US)
  Receive Date: 20160212
  Receipt Date: 20160212
  Transmission Date: 20160526
  Serious: Yes (Hospitalization, Other)
  Sender: FDA-Public Use
  Company Number: US-BRISTOL-MYERS SQUIBB COMPANY-BMS-2016-006884

PATIENT
  Sex: Male

DRUGS (1)
  1. WARFARIN SODIUM. [Suspect]
     Active Substance: WARFARIN SODIUM
     Indication: PRODUCT USED FOR UNKNOWN INDICATION
     Dosage: 4.5 MG, UNK
     Route: 048

REACTIONS (11)
  - Pancreatic haemorrhage [Unknown]
  - Urinary tract infection [Unknown]
  - Splenectomy [Unknown]
  - Intra-abdominal haematoma [Unknown]
  - Anaemia [Unknown]
  - International normalised ratio increased [Unknown]
  - White blood cell count increased [Unknown]
  - Gastric dilatation [Unknown]
  - Spleen disorder [Unknown]
  - Prothrombin time prolonged [Unknown]
  - Pneumonia [Unknown]

NARRATIVE: CASE EVENT DATE: 20150625
